FAERS Safety Report 14026500 (Version 1)
Quarter: 2017Q3

REPORT INFORMATION
  Report Type: Spontaneous
  Country: TW (occurrence: TW)
  Receive Date: 20170929
  Receipt Date: 20170929
  Transmission Date: 20171128
  Serious: Yes (Hospitalization)
  Sender: FDA-Public Use
  Company Number: TW-APOTEX-2017AP019355

PATIENT
  Age: 44 Year
  Sex: Female

DRUGS (9)
  1. ARIPIPRAZOLE. [Concomitant]
     Active Substance: ARIPIPRAZOLE
     Dosage: 20 MG, PER DAY
     Route: 065
  2. ZOTEPINE [Suspect]
     Active Substance: ZOTEPINE
     Indication: SCHIZOAFFECTIVE DISORDER
     Dosage: 100 MG, PER DAY
     Route: 065
     Dates: start: 201301
  3. APO-OLANZAPINE ODT [Suspect]
     Active Substance: OLANZAPINE
     Indication: SCHIZOAFFECTIVE DISORDER
     Dosage: 10 MG, PER DAY
     Route: 065
     Dates: start: 201308
  4. RISPERIDONE. [Suspect]
     Active Substance: RISPERIDONE
     Dosage: 3 MG, PER DAY
     Route: 065
     Dates: start: 201409
  5. RISPERIDONE. [Suspect]
     Active Substance: RISPERIDONE
     Dosage: 1 MG, PER DAY
     Route: 065
     Dates: start: 20151112, end: 20151126
  6. SERTRALINE [Suspect]
     Active Substance: SERTRALINE HYDROCHLORIDE
     Indication: SCHIZOAFFECTIVE DISORDER
     Dosage: 50 MG, PER DAY
     Route: 065
     Dates: start: 201308
  7. ARIPIPRAZOLE. [Concomitant]
     Active Substance: ARIPIPRAZOLE
     Indication: SCHIZOAFFECTIVE DISORDER
     Dosage: 10 MG, PER DAY
     Route: 065
  8. RISPERIDONE. [Suspect]
     Active Substance: RISPERIDONE
     Indication: SCHIZOAFFECTIVE DISORDER
     Dosage: 2 MG, PER DAY
     Route: 065
     Dates: start: 2011
  9. RISPERIDONE. [Suspect]
     Active Substance: RISPERIDONE
     Dosage: 2 MG, PER DAY
     Route: 065
     Dates: start: 20151022

REACTIONS (2)
  - Treatment noncompliance [Unknown]
  - Hyperprolactinaemia [Recovered/Resolved]
